FAERS Safety Report 6338776-9 (Version None)
Quarter: 2009Q3

REPORT INFORMATION
  Report Type: 
  Country: None (occurrence: None)
  Receive Date: 20090903
  Receipt Date: 20090826
  Transmission Date: 20100115
  Serious: Yes (Hospitalization, Disabling, Other)
  Sender: FDA-Public Use
  Company Number: DE-JNJFOC-20090809147

PATIENT
  Sex: Male
  Weight: 130 kg

DRUGS (4)
  1. RISPERDAL [Suspect]
     Indication: IDEAS OF REFERENCE
     Route: 048
  2. VALPROIC ACID [Concomitant]
     Route: 048
  3. REMERGIL [Concomitant]
     Route: 048
  4. ENALAPRIL MALEATE [Concomitant]
     Route: 048

REACTIONS (1)
  - CEREBRAL INFARCTION [None]
